FAERS Safety Report 18472290 (Version 1)
Quarter: 2020Q4

REPORT INFORMATION
  Report Type: Spontaneous
  Country: DE (occurrence: DE)
  Receive Date: 20201106
  Receipt Date: 20201106
  Transmission Date: 20210114
  Serious: Yes (Other)
  Sender: FDA-Public Use
  Company Number: DE-TEVA-2020-DE-1844936

PATIENT
  Age: 6 Decade
  Sex: Female

DRUGS (1)
  1. DICLOFENAC RATIOPHARM 100 MG RETARDKAPSELN [Suspect]
     Active Substance: DICLOFENAC SODIUM
     Indication: BACK PAIN
     Dosage: 100 MILLIGRAM DAILY;
     Route: 048
     Dates: start: 201910, end: 202010

REACTIONS (1)
  - Haematochezia [Unknown]
